FAERS Safety Report 7767967-5 (Version None)
Quarter: 2011Q3

REPORT INFORMATION
  Report Type: 
  Country: None (occurrence: None)
  Receive Date: 20110922
  Receipt Date: 20100517
  Transmission Date: 20111222
  Serious: Yes (Other)
  Sender: FDA-Public Use
  Company Number: US-ASTRAZENECA-2009SE23950

PATIENT
  Sex: Male

DRUGS (7)
  1. REMERON [Concomitant]
     Dates: start: 20030423
  2. SEROQUEL [Suspect]
     Route: 048
     Dates: start: 20030423
  3. PEGINTERFERON [Concomitant]
     Indication: LIVER DISORDER
     Dates: start: 20030423
  4. TORADOL [Concomitant]
     Dates: start: 20030423
  5. EFFEXOR [Concomitant]
     Dates: start: 20030423
  6. KLONOPIN [Concomitant]
     Dates: start: 20030423
  7. KEFLEX [Concomitant]
     Dates: start: 20030423

REACTIONS (3)
  - ERECTILE DYSFUNCTION [None]
  - DIABETES MELLITUS [None]
  - DIABETES MELLITUS INADEQUATE CONTROL [None]
